FAERS Safety Report 9877875 (Version 3)
Quarter: 2014Q2

REPORT INFORMATION
  Report Type: Spontaneous
  Country: US (occurrence: US)
  Receive Date: 20140206
  Receipt Date: 20140516
  Transmission Date: 20141212
  Serious: Yes (Hospitalization)
  Sender: FDA-Public Use
  Company Number: US-BAYER-2014-018866

PATIENT
  Age: 23 Year
  Sex: Female
  Weight: 63.49 kg

DRUGS (13)
  1. MIRENA [Suspect]
     Indication: CONTRACEPTION
     Dosage: 20 MCG/24HR, CONT
     Route: 015
     Dates: start: 20110613, end: 20120417
  2. VALIUM [Concomitant]
     Indication: ANXIETY
     Route: 048
  3. IBUPROFEN [Concomitant]
     Route: 048
  4. ULTRAM [Concomitant]
     Route: 048
  5. PPD DISPOSABLE [Concomitant]
     Route: 023
  6. PROZAC [Concomitant]
  7. RESTORIL [Concomitant]
  8. FLUOXETINE [Concomitant]
  9. DIAZEPAM [Concomitant]
  10. TRAMADOL [Concomitant]
  11. MOBIC [Concomitant]
  12. TORADOL [Concomitant]
  13. NEURONTIN [Concomitant]

REACTIONS (8)
  - Uterine perforation [None]
  - Device issue [None]
  - Menorrhagia [Recovered/Resolved]
  - Injury [None]
  - Pain [None]
  - Emotional distress [None]
  - Depression [None]
  - Anxiety [None]
